FAERS Safety Report 23227718 (Version 2)
Quarter: 2023Q4

REPORT INFORMATION
  Report Type: Report from Study
  Country: NL (occurrence: NL)
  Receive Date: 20231125
  Receipt Date: 20231128
  Transmission Date: 20240109
  Serious: Yes (Hospitalization, Other)
  Sender: FDA-Public Use
  Company Number: NL-ABBVIE-5506664

PATIENT
  Sex: Female

DRUGS (13)
  1. ADALIMUMAB [Suspect]
     Active Substance: ADALIMUMAB\ISOPROPYL ALCOHOL
     Indication: Crohn^s disease
     Route: 058
     Dates: start: 2013, end: 2013
  2. BOTOX [Suspect]
     Active Substance: ONABOTULINUMTOXINA
     Indication: Anal fissure
     Dosage: TIME INTERVAL: AS NECESSARY
     Route: 065
     Dates: start: 202203, end: 202203
  3. THIOGUANINE ANHYDROUS [Suspect]
     Active Substance: THIOGUANINE ANHYDROUS
     Indication: Product used for unknown indication
     Dosage: FREQUENCY TEXT: FOR 6 WEEKS
     Route: 065
     Dates: start: 20230222, end: 202304
  4. DILTIAZEM [Suspect]
     Active Substance: DILTIAZEM
     Indication: Product used for unknown indication
     Route: 065
  5. AZATHIOPRINE [Concomitant]
     Active Substance: AZATHIOPRINE
     Indication: Product used for unknown indication
     Dosage: FORM STRENGTH: 100 MILLIGRAM
     Dates: start: 2012, end: 2013
  6. PREDNISONE [Suspect]
     Active Substance: PREDNISONE
     Indication: Product used for unknown indication
     Dosage: HIGH DOSE
     Route: 065
     Dates: start: 202208, end: 202212
  7. PREDNISONE [Suspect]
     Active Substance: PREDNISONE
     Indication: Product used for unknown indication
     Route: 065
     Dates: start: 2012, end: 202208
  8. PREDNISONE [Suspect]
     Active Substance: PREDNISONE
     Indication: Product used for unknown indication
     Dosage: TAPERING OFF
     Route: 065
     Dates: start: 202212, end: 202302
  9. METHOTREXATE [Suspect]
     Active Substance: METHOTREXATE
     Indication: Product used for unknown indication
     Route: 065
     Dates: start: 2014, end: 2014
  10. VEDOLIZUMAB [Concomitant]
     Active Substance: VEDOLIZUMAB
     Indication: Product used for unknown indication
     Dates: start: 202208
  11. INFLIXIMAB [Suspect]
     Active Substance: INFLIXIMAB
     Indication: Product used for unknown indication
     Dosage: FORM STRENGTH: 10 MILLIGRAM
     Route: 065
     Dates: start: 2013, end: 202201
  12. INFLIXIMAB [Suspect]
     Active Substance: INFLIXIMAB
     Indication: Product used for unknown indication
     Dosage: FORM STRENGTH: 10 MG
     Route: 065
     Dates: start: 201912
  13. USTEKINUMAB [Concomitant]
     Active Substance: USTEKINUMAB
     Indication: Product used for unknown indication
     Dates: start: 202201

REACTIONS (20)
  - Clostridial infection [Recovered/Resolved]
  - Haemorrhage [Unknown]
  - Haemorrhoids [Unknown]
  - Colitis [Unknown]
  - Condition aggravated [Unknown]
  - Psoriasis [Unknown]
  - Anal abscess [Unknown]
  - Pancytopenia [Unknown]
  - Abdominal pain [Unknown]
  - Nausea [Not Recovered/Not Resolved]
  - Drug ineffective [Not Recovered/Not Resolved]
  - Post procedural complication [Unknown]
  - Anal fistula [Unknown]
  - Clostridial infection [Unknown]
  - Crohn^s disease [Unknown]
  - Anal fistula [Unknown]
  - Thiopurine methyltransferase decreased [Unknown]
  - Headache [Not Recovered/Not Resolved]
  - Anal fissure [Unknown]
  - Off label use [Not Recovered/Not Resolved]

NARRATIVE: CASE EVENT DATE: 20130101
